FAERS Safety Report 9856297 (Version 1)
Quarter: 2014Q1

REPORT INFORMATION
  Report Type: Spontaneous
  Country: US (occurrence: US)
  Receive Date: 20140130
  Receipt Date: 20140130
  Transmission Date: 20141002
  Serious: No
  Sender: FDA-Public Use
  Company Number: US-B.I. PHARMACEUTICALS,INC./RIDGEFIELD-2014-BI-02789BP

PATIENT
  Age: 50 Year
  Sex: Male

DRUGS (2)
  1. TRADJENTA [Suspect]
     Indication: ADJUVANT THERAPY
     Dosage: 5 MG
     Route: 048
  2. METFORMIN [Concomitant]
     Indication: DIABETES MELLITUS MANAGEMENT
     Dosage: 2000 MG
     Route: 048

REACTIONS (1)
  - Neuropathy peripheral [Unknown]
